FAERS Safety Report 15605351 (Version 1)
Quarter: 2018Q4

REPORT INFORMATION
  Report Type: Report from Study
  Country: BR (occurrence: BR)
  Receive Date: 20181112
  Receipt Date: 20181112
  Transmission Date: 20190205
  Serious: Yes (Hospitalization, Other)
  Sender: FDA-Public Use
  Company Number: BR-UCBSA-2018049089

PATIENT
  Sex: Male
  Weight: 82 kg

DRUGS (1)
  1. LEVETIRACETAM. [Suspect]
     Active Substance: LEVETIRACETAM
     Indication: EPILEPSY
     Dosage: 2000 MG IN MORNING AND 3000 MG AT NIGHT, 2X/DAY (BID)
     Route: 048
     Dates: start: 2001

REACTIONS (3)
  - Off label use [Unknown]
  - Epilepsy [Unknown]
  - Overdose [Unknown]

NARRATIVE: CASE EVENT DATE: 2001
